FAERS Safety Report 10681771 (Version 1)
Quarter: 2014Q4

REPORT INFORMATION
  Report Type: Spontaneous
  Country: US (occurrence: None)
  Receive Date: 20141224
  Receipt Date: 20141224
  Transmission Date: 20150529
  Serious: Yes (Hospitalization)
  Sender: FDA-Public Use
  Company Number: INS201412-000325

PATIENT
  Age: 31 Year
  Sex: Male

DRUGS (3)
  1. FENTANYL (FENTANYL) [Suspect]
     Active Substance: FENTANYL
     Indication: PAIN
  2. METHADONE [Suspect]
     Active Substance: METHADONE HYDROCHLORIDE
     Indication: PAIN
  3. OXYCODONE (OXYCODONE) [Suspect]
     Active Substance: OXYCODONE
     Indication: PAIN

REACTIONS (6)
  - Arthralgia [None]
  - Pneumonia [None]
  - Hyperaesthesia [None]
  - Headache [None]
  - Drug effect decreased [None]
  - Chest discomfort [None]
